FAERS Safety Report 9668844 (Version 1)
Quarter: 2013Q4

REPORT INFORMATION
  Report Type: Spontaneous
  Country: US (occurrence: None)
  Receive Date: 20131104
  Receipt Date: 20131104
  Transmission Date: 20140711
  Serious: Yes (Life-Threatening, Hospitalization)
  Sender: FDA-Public Use
  Company Number: None

PATIENT
  Age: 43 Year
  Sex: Female
  Weight: 58.97 kg

DRUGS (1)
  1. GOLYTELY PACKET WITH POWDER FOR RECONSTITUT BRAINTREE LABS [Suspect]
     Indication: COLONOSCOPY
     Dosage: PACKET WITH POWDER FOR -- TAKEN BY MOUTH
     Route: 048
     Dates: start: 20130804, end: 20130804

REACTIONS (1)
  - Hypoglycaemia [None]
